FAERS Safety Report 4893575-X (Version None)
Quarter: 2006Q1

REPORT INFORMATION
  Report Type: 
  Country: None (occurrence: None)
  Receive Date: 20060124
  Receipt Date: 20060116
  Transmission Date: 20060701
  Serious: Yes (Other)
  Sender: FDA-Public Use
  Company Number: 2005168923

PATIENT
  Sex: Male

DRUGS (6)
  1. CABERGOLINE [Suspect]
     Indication: PARKINSON'S DISEASE
     Dosage: ORAL
     Route: 048
     Dates: start: 20010301
  2. SINEMET (CARBIDOPA) [Concomitant]
  3. EFFEXOR [Concomitant]
  4. REMINYL (GALANTAMINE) [Concomitant]
  5. FLIXOTIDE ^GLAXO^ (FLUTICASONE PROPIONATE) [Concomitant]
  6. SERETIDE (FLUTICASONE PROPIONATE, SALMETEROL XINAFOATE) [Concomitant]

REACTIONS (1)
  - ABNORMAL BEHAVIOUR [None]
